FAERS Safety Report 21385987 (Version 2)
Quarter: 2022Q4

REPORT INFORMATION
  Report Type: Spontaneous
  Country: MX (occurrence: MX)
  Receive Date: 20220928
  Receipt Date: 20221031
  Transmission Date: 20230113
  Serious: No
  Sender: FDA-Public Use
  Company Number: MX-PFIZER INC-PV202200057658

PATIENT
  Age: 4 Year
  Sex: Female

DRUGS (1)
  1. GENOTROPIN [Suspect]
     Active Substance: SOMATROPIN
     Dosage: UNK
     Route: 058
     Dates: start: 20201124

REACTIONS (2)
  - Drug dose omission by device [Unknown]
  - Device use issue [Unknown]

NARRATIVE: CASE EVENT DATE: 20220903
